FAERS Safety Report 20455276 (Version 2)
Quarter: 2022Q1

REPORT INFORMATION
  Report Type: Spontaneous
  Country: US (occurrence: US)
  Receive Date: 20220210
  Receipt Date: 20220216
  Transmission Date: 20220423
  Serious: No
  Sender: FDA-Public Use
  Company Number: US-JNJFOC-20220204928

PATIENT
  Sex: Male

DRUGS (1)
  1. MENS ROGAINE EXTRA STRENGTH [Suspect]
     Active Substance: MINOXIDIL
     Indication: Alopecia
     Dosage: AS PER INSTRUCTIONS
     Route: 065
     Dates: start: 20200101

REACTIONS (1)
  - Seborrhoea [Recovered/Resolved]

NARRATIVE: CASE EVENT DATE: 20200101
